FAERS Safety Report 25111616 (Version 1)
Quarter: 2025Q1

REPORT INFORMATION
  Report Type: Other
  Country: US (occurrence: US)
  Receive Date: 20250324
  Receipt Date: 20250324
  Transmission Date: 20250408
  Serious: No
  Sender: TRAVERE THERAPEUTICS
  Company Number: US-TRAVERE-2025TVT00254

PATIENT
  Sex: Female

DRUGS (2)
  1. FILSPARI [Suspect]
     Active Substance: SPARSENTAN
     Indication: IgA nephropathy
     Dosage: 1 TABLET, ONCE A DAILY FOR DAYS 1-14
     Route: 048
     Dates: start: 202412
  2. FILSPARI [Suspect]
     Active Substance: SPARSENTAN
     Dosage: 2 TABLETS, ONCE A DAILY ON DAYS 15-30
     Route: 048

REACTIONS (1)
  - Hepatic function abnormal [Unknown]
